FAERS Safety Report 25469395 (Version 1)
Quarter: 2025Q2

REPORT INFORMATION
  Report Type: Spontaneous
  Country: DE (occurrence: DE)
  Receive Date: 20250623
  Receipt Date: 20250623
  Transmission Date: 20250717
  Serious: Yes (Hospitalization)
  Sender: MYLAN
  Company Number: DE-SANDOZ-SDZ2025DE039781

PATIENT
  Sex: Female

DRUGS (56)
  1. CELECOXIB [Suspect]
     Active Substance: CELECOXIB
     Indication: Product used for unknown indication
  2. CELECOXIB [Suspect]
     Active Substance: CELECOXIB
  3. CELECOXIB [Suspect]
     Active Substance: CELECOXIB
     Route: 065
  4. CELECOXIB [Suspect]
     Active Substance: CELECOXIB
     Route: 065
  5. CELECOXIB [Suspect]
     Active Substance: CELECOXIB
  6. CELECOXIB [Suspect]
     Active Substance: CELECOXIB
  7. CELECOXIB [Suspect]
     Active Substance: CELECOXIB
     Route: 065
  8. CELECOXIB [Suspect]
     Active Substance: CELECOXIB
     Route: 065
  9. IBUPROFEN [Suspect]
     Active Substance: IBUPROFEN
     Indication: Product used for unknown indication
     Dates: start: 20210108, end: 20210111
  10. IBUPROFEN [Suspect]
     Active Substance: IBUPROFEN
     Route: 065
     Dates: start: 20210108, end: 20210111
  11. IBUPROFEN [Suspect]
     Active Substance: IBUPROFEN
     Route: 065
     Dates: start: 20210108, end: 20210111
  12. IBUPROFEN [Suspect]
     Active Substance: IBUPROFEN
     Dates: start: 20210108, end: 20210111
  13. COSENTYX [Suspect]
     Active Substance: SECUKINUMAB
     Indication: Product used for unknown indication
     Dates: start: 20170503, end: 20200115
  14. COSENTYX [Suspect]
     Active Substance: SECUKINUMAB
     Dates: start: 20170503, end: 20200115
  15. COSENTYX [Suspect]
     Active Substance: SECUKINUMAB
     Route: 065
     Dates: start: 20170503, end: 20200115
  16. COSENTYX [Suspect]
     Active Substance: SECUKINUMAB
     Route: 065
     Dates: start: 20170503, end: 20200115
  17. COSENTYX [Suspect]
     Active Substance: SECUKINUMAB
  18. COSENTYX [Suspect]
     Active Substance: SECUKINUMAB
  19. COSENTYX [Suspect]
     Active Substance: SECUKINUMAB
     Route: 065
  20. COSENTYX [Suspect]
     Active Substance: SECUKINUMAB
     Route: 065
  21. MELOXICAM [Suspect]
     Active Substance: MELOXICAM
     Indication: Product used for unknown indication
  22. MELOXICAM [Suspect]
     Active Substance: MELOXICAM
  23. MELOXICAM [Suspect]
     Active Substance: MELOXICAM
     Route: 065
  24. MELOXICAM [Suspect]
     Active Substance: MELOXICAM
     Route: 065
  25. MELOXICAM [Suspect]
     Active Substance: MELOXICAM
  26. MELOXICAM [Suspect]
     Active Substance: MELOXICAM
  27. MELOXICAM [Suspect]
     Active Substance: MELOXICAM
     Route: 065
  28. MELOXICAM [Suspect]
     Active Substance: MELOXICAM
     Route: 065
  29. MELOXICAM [Suspect]
     Active Substance: MELOXICAM
     Dates: start: 20090101, end: 20150225
  30. MELOXICAM [Suspect]
     Active Substance: MELOXICAM
     Route: 065
     Dates: start: 20090101, end: 20150225
  31. MELOXICAM [Suspect]
     Active Substance: MELOXICAM
     Dates: start: 20090101, end: 20150225
  32. MELOXICAM [Suspect]
     Active Substance: MELOXICAM
     Route: 065
     Dates: start: 20090101, end: 20150225
  33. TALTZ [Suspect]
     Active Substance: IXEKIZUMAB
     Indication: Product used for unknown indication
     Dates: start: 20200212, end: 20200812
  34. TALTZ [Suspect]
     Active Substance: IXEKIZUMAB
     Route: 065
     Dates: start: 20200212, end: 20200812
  35. TALTZ [Suspect]
     Active Substance: IXEKIZUMAB
     Route: 065
     Dates: start: 20200212, end: 20200812
  36. TALTZ [Suspect]
     Active Substance: IXEKIZUMAB
     Dates: start: 20200212, end: 20200812
  37. TREMFYA [Suspect]
     Active Substance: GUSELKUMAB
     Indication: Product used for unknown indication
     Dates: start: 20210309, end: 20210730
  38. TREMFYA [Suspect]
     Active Substance: GUSELKUMAB
     Route: 065
     Dates: start: 20210309, end: 20210730
  39. TREMFYA [Suspect]
     Active Substance: GUSELKUMAB
     Route: 065
     Dates: start: 20210309, end: 20210730
  40. TREMFYA [Suspect]
     Active Substance: GUSELKUMAB
     Dates: start: 20210309, end: 20210730
  41. METHOTREXATE (METHOTREXATE SODIUM) [Suspect]
     Active Substance: METHOTREXATE SODIUM
     Indication: Product used for unknown indication
  42. METHOTREXATE (METHOTREXATE SODIUM) [Suspect]
     Active Substance: METHOTREXATE SODIUM
     Route: 048
  43. METHOTREXATE (METHOTREXATE SODIUM) [Suspect]
     Active Substance: METHOTREXATE SODIUM
     Route: 048
  44. METHOTREXATE (METHOTREXATE SODIUM) [Suspect]
     Active Substance: METHOTREXATE SODIUM
  45. XELJANZ [Suspect]
     Active Substance: TOFACITINIB CITRATE
     Indication: Product used for unknown indication
     Dates: start: 20210908, end: 20220315
  46. XELJANZ [Suspect]
     Active Substance: TOFACITINIB CITRATE
     Route: 065
     Dates: start: 20210908, end: 20220315
  47. XELJANZ [Suspect]
     Active Substance: TOFACITINIB CITRATE
     Route: 065
     Dates: start: 20210908, end: 20220315
  48. XELJANZ [Suspect]
     Active Substance: TOFACITINIB CITRATE
     Dates: start: 20210908, end: 20220315
  49. RINVOQ [Suspect]
     Active Substance: UPADACITINIB
     Indication: Product used for unknown indication
     Dates: start: 20220320, end: 20221231
  50. RINVOQ [Suspect]
     Active Substance: UPADACITINIB
     Dates: start: 20220320, end: 20221231
  51. RINVOQ [Suspect]
     Active Substance: UPADACITINIB
     Route: 065
     Dates: start: 20220320, end: 20221231
  52. RINVOQ [Suspect]
     Active Substance: UPADACITINIB
     Route: 065
     Dates: start: 20220320, end: 20221231
  53. RINVOQ [Suspect]
     Active Substance: UPADACITINIB
  54. RINVOQ [Suspect]
     Active Substance: UPADACITINIB
  55. RINVOQ [Suspect]
     Active Substance: UPADACITINIB
     Route: 065
  56. RINVOQ [Suspect]
     Active Substance: UPADACITINIB
     Route: 065

REACTIONS (1)
  - Removal of internal fixation [Unknown]
